FAERS Safety Report 21464958 (Version 1)
Quarter: 2022Q4

REPORT INFORMATION
  Report Type: Spontaneous
  Country: US (occurrence: US)
  Receive Date: 20221017
  Receipt Date: 20221017
  Transmission Date: 20230113
  Serious: Yes (Hospitalization)
  Sender: FDA-Public Use
  Company Number: US-TEVA-2022-US-2816693

PATIENT
  Age: 18 Year
  Sex: Male
  Weight: 66.5 kg

DRUGS (8)
  1. PROPOFOL [Suspect]
     Active Substance: PROPOFOL
     Indication: Anaesthesia
     Dosage: INDUCTION ANAESTHESIA: 5.4 MG/KG
     Route: 065
  2. PROPOFOL [Suspect]
     Active Substance: PROPOFOL
     Dosage: ANAESTHESIA MAINTAINED ON: 110-150 MICROGRAM/KG/MIN (TOTAL 2.464 G)
     Route: 050
  3. FENTANYL [Suspect]
     Active Substance: FENTANYL
     Indication: Anaesthesia
     Dosage: INDUCTION ANAESTHESIA: (3.9 UG/KG)
     Route: 065
  4. HYDROMORPHONE [Suspect]
     Active Substance: HYDROMORPHONE
     Indication: Anaesthesia
     Dosage: (0.03 MG/KG)
     Route: 042
  5. METHADONE [Suspect]
     Active Substance: METHADONE HYDROCHLORIDE
     Indication: Anaesthesia
     Dosage: (0.3 MG/KG)
     Route: 042
  6. SERTRALINE [Suspect]
     Active Substance: SERTRALINE HYDROCHLORIDE
     Indication: Depression
     Route: 065
  7. MIDAZOLAM [Suspect]
     Active Substance: MIDAZOLAM
     Indication: Anxiolytic therapy
     Dosage: (0.03 MG/KG)
     Route: 042
  8. REMIFENTANIL [Suspect]
     Active Substance: REMIFENTANIL
     Indication: Anaesthesia
     Dosage: ANAESTHESIA MAINTAINED ON: 0.2-0.4 MICROGRAM/KG/MIN (TOTAL 7 MG)
     Route: 065

REACTIONS (2)
  - Respiratory depression [Unknown]
  - Hypercapnia [Unknown]
